FAERS Safety Report 17833425 (Version 1)
Quarter: 2020Q2

REPORT INFORMATION
  Report Type: Spontaneous
  Country: US (occurrence: US)
  Receive Date: 20200528
  Receipt Date: 20200528
  Transmission Date: 20200714
  Serious: Yes (Other)
  Sender: FDA-Public Use
  Company Number: US-HIKMA PHARMACEUTICALS USA INC.-US-H14001-20-02481

PATIENT

DRUGS (1)
  1. PHENERGAN [Suspect]
     Active Substance: PROMETHAZINE HYDROCHLORIDE
     Indication: PRODUCT USED FOR UNKNOWN INDICATION
     Route: 042

REACTIONS (6)
  - Vena cava filter insertion [Unknown]
  - Fibula fracture [Unknown]
  - Gastrointestinal disorder [Unknown]
  - Oral discomfort [Unknown]
  - Pathogen resistance [Unknown]
  - Femur fracture [Unknown]
